FAERS Safety Report 9053747 (Version 1)
Quarter: 2013Q1

REPORT INFORMATION
  Report Type: Spontaneous
  Country: US (occurrence: None)
  Receive Date: 20130201
  Receipt Date: 20130201
  Transmission Date: 20140127
  Serious: Yes (Hospitalization)
  Sender: FDA-Public Use
  Company Number: None

PATIENT
  Age: 45 Year
  Sex: Female
  Weight: 77 kg

DRUGS (3)
  1. AMBIEN CR [Suspect]
  2. NUVIGIL [Concomitant]
  3. LISINOPRIL/HCTZ [Concomitant]

REACTIONS (4)
  - Headache [None]
  - Cerebrovascular accident [None]
  - Confusional state [None]
  - Somnolence [None]
